FAERS Safety Report 18269835 (Version 2)
Quarter: 2020Q3

REPORT INFORMATION
  Report Type: Spontaneous
  Country: GB (occurrence: GB)
  Receive Date: 20200916
  Receipt Date: 20200925
  Transmission Date: 20201103
  Serious: Yes (Life-Threatening, Disabling, Other)
  Sender: FDA-Public Use
  Company Number: GB-AUROBINDO-AUR-APL-2020-047558

PATIENT
  Age: 61 Year
  Sex: Female
  Weight: 52 kg

DRUGS (7)
  1. THIAMINE. [Suspect]
     Active Substance: THIAMINE
     Indication: GASTROENTERITIS
     Dosage: 200 MILLIGRAM, ONCE A DAY
     Route: 048
     Dates: start: 20200401, end: 20200708
  2. ALENDRONIC ACID TABLETS [Suspect]
     Active Substance: ALENDRONIC ACID
     Indication: PRODUCT USED FOR UNKNOWN INDICATION
     Dosage: 70 MILLIGRAM, EVERY WEEK
     Route: 048
     Dates: start: 20200525, end: 20200708
  3. SERETIDE [Concomitant]
     Active Substance: FLUTICASONE PROPIONATE\SALMETEROL XINAFOATE
     Indication: PRODUCT USED FOR UNKNOWN INDICATION
     Dosage: 125 MILLIGRAM
     Route: 065
  4. ADALIMUMAB [Concomitant]
     Active Substance: ADALIMUMAB
     Indication: CROHN^S DISEASE
     Dosage: 40 MILLIGRAM
     Route: 065
     Dates: start: 20200522
  5. CALCIUM [Suspect]
     Active Substance: CALCIUM
     Indication: PRODUCT USED FOR UNKNOWN INDICATION
     Dosage: 3 GRAM, ONCE A DAY
     Route: 048
     Dates: start: 20200401, end: 20200708
  6. TRAMADOL. [Concomitant]
     Active Substance: TRAMADOL
     Indication: PRODUCT USED FOR UNKNOWN INDICATION
     Dosage: UNK
     Route: 065
  7. NASONEX [Concomitant]
     Active Substance: MOMETASONE FUROATE
     Indication: HYPERSENSITIVITY
     Dosage: UNK
     Route: 065

REACTIONS (15)
  - Alopecia [Recovered/Resolved with Sequelae]
  - Constipation [Recovered/Resolved with Sequelae]
  - Asthenia [Unknown]
  - Myalgia [Recovered/Resolved with Sequelae]
  - Dyspnoea [Unknown]
  - Dysphagia [Recovered/Resolved with Sequelae]
  - Asthma [Recovered/Resolved with Sequelae]
  - Arthralgia [Recovered/Resolved with Sequelae]
  - Peripheral swelling [Recovered/Resolved with Sequelae]
  - Flatulence [Recovered/Resolved with Sequelae]
  - Mouth swelling [Recovered/Resolved with Sequelae]
  - Vision blurred [Unknown]
  - Pain in extremity [Recovered/Resolved with Sequelae]
  - Tremor [Recovered/Resolved with Sequelae]
  - Balance disorder [Unknown]

NARRATIVE: CASE EVENT DATE: 202004
